FAERS Safety Report 8372291-6 (Version None)
Quarter: 2012Q2

REPORT INFORMATION
  Report Type: 
  Country: None (occurrence: None)
  Receive Date: 20120521
  Receipt Date: 20120510
  Transmission Date: 20120825
  Serious: Yes (Hospitalization)
  Sender: FDA-Public Use
  Company Number: US-BRISTOL-MYERS SQUIBB COMPANY-16583627

PATIENT
  Age: 83 Year
  Sex: Male

DRUGS (1)
  1. COUMADIN [Suspect]

REACTIONS (1)
  - GASTROINTESTINAL INFECTION [None]
